FAERS Safety Report 8324959-5 (Version None)
Quarter: 2012Q2

REPORT INFORMATION
  Report Type: 
  Country: None (occurrence: None)
  Receive Date: 20120427
  Receipt Date: 20120416
  Transmission Date: 20120825
  Serious: Yes (Life-Threatening, Hospitalization)
  Sender: FDA-Public Use
  Company Number: 1261096

PATIENT
  Age: 73 Year
  Sex: Male
  Weight: 38.5557 kg

DRUGS (14)
  1. ROCURONIUM BROMIDE [Concomitant]
  2. ONDANSETRON [Concomitant]
  3. WARFARIN SODIUM [Concomitant]
  4. CLOPIDOGREL [Concomitant]
  5. VANCOMYCIN HYDROCHLORIDE [Suspect]
     Indication: PROPHYLAXIS
     Dosage: INTRAVENOUS (NOT OTHERWISE SPECIFIED)
     Route: 042
  6. ATENOLOL [Concomitant]
  7. MIDAZOLAM [Concomitant]
  8. BISOPROLOL FUMARATE [Concomitant]
  9. AMOXICILLIN AND CLAVULANATE POTASSIUM [Concomitant]
  10. FENTANYL CITRATE [Concomitant]
  11. DIGOXIN [Concomitant]
  12. PROPOFOL [Concomitant]
  13. OMEPRAZOLE [Concomitant]
  14. EZETIMIBE [Concomitant]

REACTIONS (4)
  - OXYGEN SATURATION DECREASED [None]
  - CARDIAC ARREST [None]
  - CHEST PAIN [None]
  - BRONCHOSPASM [None]
